FAERS Safety Report 10262634 (Version 2)
Quarter: 2014Q2

REPORT INFORMATION
  Report Type: Report from Study
  Country: US (occurrence: US)
  Receive Date: 20140626
  Receipt Date: 20140626
  Transmission Date: 20141212
  Serious: Yes (Other)
  Sender: FDA-Public Use
  Company Number: US-MYLANLABS-2013S1008424

PATIENT
  Age: 40 Year
  Sex: Female

DRUGS (10)
  1. CLOZAPINE TABLETS [Suspect]
     Indication: SCHIZOPHRENIA
  2. CLOZAPINE TABLETS [Suspect]
     Indication: SCHIZOPHRENIA
     Route: 048
     Dates: start: 20121212, end: 20130716
  3. ASA [Concomitant]
  4. COGENTIN [Concomitant]
  5. DEPOKOTE [Concomitant]
  6. METAMUCIL [Concomitant]
  7. METFORMIN [Concomitant]
     Indication: DIABETES MELLITUS
  8. MVI [Concomitant]
  9. SENOKOT [Concomitant]
  10. ZYPREXA [Concomitant]

REACTIONS (1)
  - Granulocytopenia [Recovered/Resolved]
